FAERS Safety Report 14294236 (Version 2)
Quarter: 2017Q4

REPORT INFORMATION
  Report Type: Report from Study
  Country: JP (occurrence: JP)
  Receive Date: 20171217
  Receipt Date: 20171225
  Transmission Date: 20180321
  Serious: Yes (Hospitalization)
  Sender: FDA-Public Use
  Company Number: PHHY2017JP039035

PATIENT
  Age: 69 Year
  Sex: Female
  Weight: 65 kg

DRUGS (1)
  1. ZOMETA [Suspect]
     Active Substance: ZOLEDRONIC ACID
     Indication: OSTEOPOROSIS
     Dosage: 5 MG, Q12MO
     Route: 041
     Dates: start: 20170210

REACTIONS (8)
  - Pyrexia [Recovered/Resolved]
  - Joint swelling [Unknown]
  - Joint effusion [Unknown]
  - Fluid retention [Unknown]
  - Cardiac failure [Recovered/Resolved]
  - Body temperature increased [Unknown]
  - Chondrocalcinosis pyrophosphate [Recovering/Resolving]
  - Arthralgia [Recovering/Resolving]

NARRATIVE: CASE EVENT DATE: 20170211
